FAERS Safety Report 18558696 (Version 1)
Quarter: 2020Q4

REPORT INFORMATION
  Report Type: Spontaneous
  Country: US (occurrence: US)
  Receive Date: 20201130
  Receipt Date: 20201130
  Transmission Date: 20210114
  Serious: Yes (Hospitalization, Other)
  Sender: FDA-Public Use
  Company Number: US-009507513-2011USA016168

PATIENT
  Age: 82 Year
  Sex: Male
  Weight: 115.2 kg

DRUGS (5)
  1. DITROPAN [Concomitant]
     Active Substance: OXYBUTYNIN CHLORIDE
     Indication: POLLAKIURIA
     Dosage: 5 MG, QD
     Route: 048
  2. NEXIUM [Suspect]
     Active Substance: ESOMEPRAZOLE MAGNESIUM
     Indication: HIATUS HERNIA
     Dosage: 80 MG, QD
     Route: 048
     Dates: start: 1994, end: 20131013
  3. PRINIVIL [Suspect]
     Active Substance: LISINOPRIL
     Indication: HYPERTENSION
     Dosage: 40 MG, QD
     Route: 048
  4. OMEPRAZOLE. [Suspect]
     Active Substance: OMEPRAZOLE
     Dosage: 2 DOSAGE FORM, QD
     Route: 048
  5. FLUTICASONE. [Concomitant]
     Active Substance: FLUTICASONE
     Indication: MULTIPLE ALLERGIES
     Dosage: UNK
     Route: 048

REACTIONS (7)
  - Product use in unapproved indication [Unknown]
  - Hypoacusis [Unknown]
  - Drug ineffective [Unknown]
  - Oesophageal stenosis [Recovered/Resolved]
  - Off label use [Unknown]
  - Product dose omission issue [Unknown]
  - Hiatus hernia [Recovered/Resolved]

NARRATIVE: CASE EVENT DATE: 1994
